FAERS Safety Report 6899924-5 (Version None)
Quarter: 2010Q3

REPORT INFORMATION
  Report Type: 
  Country: None (occurrence: None)
  Receive Date: 20100803
  Receipt Date: 20071221
  Transmission Date: 20110219
  Serious: Yes (Other)
  Sender: FDA-Public Use
  Company Number: US-PFIZER INC-2007106530

PATIENT
  Sex: Female
  Weight: 63.5 kg

DRUGS (12)
  1. LYRICA [Suspect]
     Indication: FIBROMYALGIA
     Dates: start: 20071214, end: 20071219
  2. AMBIEN [Concomitant]
  3. SULFASALAZINE [Concomitant]
  4. OMEPRAZOLE [Concomitant]
  5. RELAFEN [Concomitant]
  6. GUAIFENESIN W/DEXTROMETHORPHAN [Concomitant]
  7. ACETYLSALICYLIC ACID SRT [Concomitant]
  8. PREMARIN [Concomitant]
  9. LEVOXYL [Concomitant]
  10. ASTELIN [Concomitant]
  11. RHINOCORT [Concomitant]
  12. IMITREX [Concomitant]

REACTIONS (9)
  - ANXIETY [None]
  - DEPRESSED MOOD [None]
  - DRUG INEFFECTIVE [None]
  - FEELING ABNORMAL [None]
  - FEELING OF BODY TEMPERATURE CHANGE [None]
  - HEADACHE [None]
  - PAIN [None]
  - PANIC ATTACK [None]
  - PARANOIA [None]
